FAERS Safety Report 16570911 (Version 1)
Quarter: 2019Q3

REPORT INFORMATION
  Report Type: Spontaneous
  Country: US (occurrence: US)
  Receive Date: 20190531
  Receipt Date: 20190531
  Transmission Date: 20191004
  Serious: Yes (Hospitalization)
  Sender: FDA-Public Use
  Company Number: None

PATIENT
  Age: 35 Year
  Sex: Male
  Weight: 68 kg

DRUGS (1)
  1. SULFAMETHOXAZOLE/TRIMETHOPRIM [Suspect]
     Active Substance: SULFAMETHOXAZOLE\TRIMETHOPRIM
     Indication: UPPER RESPIRATORY TRACT INFECTION
     Dosage: ?          OTHER DOSE:800/160MG;?
     Route: 048
     Dates: start: 20181026, end: 20181030

REACTIONS (3)
  - Rash [None]
  - Pruritus [None]
  - Dyspnoea [None]

NARRATIVE: CASE EVENT DATE: 20181030
